FAERS Safety Report 7671602-4 (Version None)
Quarter: 2011Q3

REPORT INFORMATION
  Report Type: 
  Country: None (occurrence: None)
  Receive Date: 20110809
  Receipt Date: 20110803
  Transmission Date: 20111222
  Serious: Yes (Hospitalization)
  Sender: FDA-Public Use
  Company Number: IT-PFIZER INC-2011178307

PATIENT
  Age: 63 Year
  Sex: Male

DRUGS (2)
  1. TESTOSTERONE PHENYL PROPIONATE INJ [Suspect]
     Indication: SECONDARY HYPOGONADISM
     Dosage: 250 ML, MONTHLY
     Route: 042
     Dates: start: 19860101, end: 20090331
  2. GENOTROPIN [Suspect]
     Indication: GROWTH HORMONE DEFICIENCY
     Dosage: 0.4 MG, 1X/DAY
     Route: 058
     Dates: start: 19980201, end: 20090331

REACTIONS (1)
  - PROSTATE CANCER [None]
